FAERS Safety Report 6056046-3 (Version None)
Quarter: 2009Q1

REPORT INFORMATION
  Report Type: 
  Country: None (occurrence: None)
  Receive Date: 20090126
  Receipt Date: 20090109
  Transmission Date: 20090719
  Serious: Yes (Other)
  Sender: FDA-Public Use
  Company Number: 2009S1000456

PATIENT
  Age: 87 Year
  Sex: Female

DRUGS (5)
  1. CLARITHROMYCIN [Suspect]
     Indication: PNEUMONIA
     Dosage: 500 MG;ORAL:TWICE A DAY
     Route: 048
     Dates: start: 20081209, end: 20081211
  2. CARBOCISTEINE (CARBOCISTEINE) [Concomitant]
  3. DIGOXIN [Concomitant]
  4. HYDROXOCOBALAMIN (HYDROXOCOBALAMIN) [Concomitant]
  5. PAROXETINE HCL [Concomitant]

REACTIONS (1)
  - BONE MARROW FAILURE [None]
